FAERS Safety Report 19620082 (Version 1)
Quarter: 2021Q3

REPORT INFORMATION
  Report Type: Spontaneous
  Country: US (occurrence: US)
  Receive Date: 20210728
  Receipt Date: 20210728
  Transmission Date: 20211014
  Serious: No
  Sender: FDA-Public Use
  Company Number: US-ROCHE-2730529

PATIENT
  Sex: Female

DRUGS (4)
  1. TUKYSA [Suspect]
     Active Substance: TUCATINIB
     Indication: PRODUCT USED FOR UNKNOWN INDICATION
     Route: 065
  2. TUKYSA [Suspect]
     Active Substance: TUCATINIB
     Dosage: TAKEN TWELVE TABLETS OF TUKYSA FOR THE FIRST COUPLE OF WEEKS OF NOVEMBER AND THEN HAD TAKEN SIX TABL
     Route: 065
  3. XELODA [Suspect]
     Active Substance: CAPECITABINE
     Indication: PRODUCT USED FOR UNKNOWN INDICATION
     Route: 065
  4. TUKYSA [Suspect]
     Active Substance: TUCATINIB
     Dosage: TAKEN 3 TABS TWICE DAILY INSTEAD OF 6 TABS TWICE A DAY
     Route: 065

REACTIONS (8)
  - Palmar-plantar erythrodysaesthesia syndrome [Recovering/Resolving]
  - Memory impairment [Unknown]
  - Temperature intolerance [Unknown]
  - Incorrect dose administered [Unknown]
  - Arthropathy [Unknown]
  - Erythema [Unknown]
  - Burning sensation [Unknown]
  - Amnesia [Unknown]
